FAERS Safety Report 5870426-8 (Version None)
Quarter: 2008Q3

REPORT INFORMATION
  Report Type: 
  Country: None (occurrence: None)
  Receive Date: 20080904
  Receipt Date: 20080826
  Transmission Date: 20090109
  Serious: Yes (Other)
  Sender: FDA-Public Use
  Company Number: CA-JNJFOC-20080806180

PATIENT
  Sex: Female

DRUGS (1)
  1. REMICADE [Suspect]
     Indication: RHEUMATOID ARTHRITIS
     Route: 042

REACTIONS (6)
  - CHEST DISCOMFORT [None]
  - HYPERHIDROSIS [None]
  - HYPOAESTHESIA [None]
  - INFUSION RELATED REACTION [None]
  - PHOTOPSIA [None]
  - VISUAL IMPAIRMENT [None]
